FAERS Safety Report 8436604 (Version 3)
Quarter: 2014Q4

REPORT INFORMATION
  Report Type: Spontaneous
  Country: US (occurrence: US)
  Receive Date: 20120301
  Receipt Date: 20141217
  Transmission Date: 20150529
  Serious: Yes (Hospitalization, Other)
  Sender: FDA-Public Use
  Company Number: US-ASTRAZENECA-2012SE12136

PATIENT
  Age: 64 Year
  Sex: Female
  Weight: 61.2 kg

DRUGS (7)
  1. TOPROL XL [Suspect]
     Active Substance: METOPROLOL SUCCINATE
     Indication: TRANSIENT ISCHAEMIC ATTACK
     Dosage: TWO TIMES A DAY
     Route: 048
  2. LISINOPRIL. [Suspect]
     Active Substance: LISINOPRIL
     Route: 048
  3. CRESTOR [Suspect]
     Active Substance: ROSUVASTATIN CALCIUM
     Indication: BLOOD DISORDER
     Dosage: DAILY
     Route: 048
  4. TEMAZEPAM. [Concomitant]
     Active Substance: TEMAZEPAM
     Indication: SLEEP DISORDER
     Dosage: AT NIGHT
     Route: 048
     Dates: start: 2012
  5. METOPROLOL UNSPECIFIED [Suspect]
     Active Substance: METOPROLOL
     Dosage: DAILY
     Route: 048
     Dates: start: 2012
  6. HYROCODONE [Concomitant]
     Indication: PAIN
     Dosage: 5/325MG, 1-2 TABLETS EVERY 4-6 HOURS, USUALLY TOOK HYDROCODONE FOUR TIMES DAILY
  7. TOVIAZ [Concomitant]
     Active Substance: FESOTERODINE FUMARATE
     Indication: INCONTINENCE
     Route: 048

REACTIONS (13)
  - Heart rate increased [Unknown]
  - Confusional state [Unknown]
  - Poor peripheral circulation [Unknown]
  - Skin ulcer [Unknown]
  - Off label use [Unknown]
  - Pulmonary vascular disorder [Unknown]
  - Cerebrovascular accident [Unknown]
  - Fall [Unknown]
  - Peripheral arterial occlusive disease [Unknown]
  - Pain [Unknown]
  - Cardiac disorder [Unknown]
  - Venous occlusion [Unknown]
  - Coronary artery restenosis [Unknown]

NARRATIVE: CASE EVENT DATE: 2010
